FAERS Safety Report 8512861-5 (Version None)
Quarter: 2012Q3

REPORT INFORMATION
  Report Type: 
  Country: None (occurrence: None)
  Receive Date: 20120716
  Receipt Date: 20120709
  Transmission Date: 20120928
  Serious: Yes (Hospitalization)
  Sender: FDA-Public Use
  Company Number: FR-UCBSA-061394

PATIENT
  Age: 82 Year
  Sex: Male

DRUGS (3)
  1. KEPPRA [Suspect]
     Route: 048
     Dates: start: 20120615, end: 20120621
  2. KEPPRA [Suspect]
     Indication: EPILEPSY
     Route: 048
     Dates: start: 20120622, end: 20120626
  3. BISOPROLOL FUMARATE [Concomitant]
     Dates: start: 20120520

REACTIONS (3)
  - ERYTHEMA [None]
  - PURPURA [None]
  - PAPULE [None]
